FAERS Safety Report 22211196 (Version 1)
Quarter: 2023Q2

REPORT INFORMATION
  Report Type: Report from Study
  Country: US (occurrence: US)
  Receive Date: 20230414
  Receipt Date: 20230414
  Transmission Date: 20230721
  Serious: Yes (Hospitalization, Other)
  Sender: FDA-Public Use
  Company Number: US-UCBSA-2023018935

PATIENT
  Age: 15 Year
  Sex: Male

DRUGS (1)
  1. FINTEPLA [Suspect]
     Active Substance: FENFLURAMINE
     Indication: Product used for unknown indication
     Dosage: 4 MILLILITER, 2X/DAY (BID)

REACTIONS (2)
  - Scoliosis surgery [Not Recovered/Not Resolved]
  - Scoliosis [Not Recovered/Not Resolved]

NARRATIVE: CASE EVENT DATE: 20230410
